FAERS Safety Report 19355019 (Version 6)
Quarter: 2021Q3

REPORT INFORMATION
  Report Type: Report from Study
  Country: US (occurrence: US)
  Receive Date: 20210531
  Receipt Date: 20210922
  Transmission Date: 20211014
  Serious: Yes (Other)
  Sender: FDA-Public Use
  Company Number: NVSC2021US115072

PATIENT
  Age: 81 Year
  Sex: Male

DRUGS (1)
  1. ENTRESTO [Suspect]
     Active Substance: SACUBITRIL\VALSARTAN
     Indication: PRODUCT USED FOR UNKNOWN INDICATION
     Dosage: UNK
     Route: 065

REACTIONS (9)
  - COVID-19 [Unknown]
  - Alopecia [Unknown]
  - Cough [Recovered/Resolved]
  - Squamous cell carcinoma [Unknown]
  - Balance disorder [Unknown]
  - Chest pain [Recovered/Resolved]
  - Throat clearing [Unknown]
  - Dyspnoea [Recovering/Resolving]
  - Chest pain [Unknown]

NARRATIVE: CASE EVENT DATE: 20210901
